FAERS Safety Report 24741983 (Version 1)
Quarter: 2024Q4

REPORT INFORMATION
  Report Type: Spontaneous
  Country: US (occurrence: US)
  Receive Date: 20241217
  Receipt Date: 20241217
  Transmission Date: 20250115
  Serious: Yes (Death, Hospitalization, Other)
  Sender: DR REDDYS
  Company Number: US-DRL-USA-LIT/USA/24/0018182

PATIENT
  Age: 19 Year
  Sex: Male

DRUGS (3)
  1. AMIODARONE [Suspect]
     Active Substance: AMIODARONE
     Indication: Atrial tachycardia
  2. METOPROLOL [Suspect]
     Active Substance: METOPROLOL
     Indication: Atrial tachycardia
  3. CARVEDILOL [Suspect]
     Active Substance: CARVEDILOL
     Indication: Atrial tachycardia

REACTIONS (6)
  - Multiple organ dysfunction syndrome [Fatal]
  - Cardiac failure [Fatal]
  - Condition aggravated [Fatal]
  - Drug ineffective [Unknown]
  - Cardiogenic shock [Unknown]
  - Product use in unapproved indication [Unknown]
